FAERS Safety Report 17740139 (Version 1)
Quarter: 2020Q2

REPORT INFORMATION
  Report Type: Spontaneous
  Country: US (occurrence: US)
  Receive Date: 20200503
  Receipt Date: 20200503
  Transmission Date: 20200714
  Serious: Yes (Other)
  Sender: FDA-Public Use
  Company Number: None

PATIENT
  Age: 74 Year
  Sex: Female
  Weight: 76.5 kg

DRUGS (11)
  1. TURMERIC [Concomitant]
     Active Substance: HERBALS\TURMERIC
  2. GINGER TABLET [Concomitant]
  3. C SUPPLEMENT [Concomitant]
  4. FLUTICASONE PROPIONATE/SALMETERAL DISKUS [Concomitant]
  5. ALLEGRA [Concomitant]
     Active Substance: FEXOFENADINE HYDROCHLORIDE
  6. METHYLPHENIDATE HLC ER 54MG [Suspect]
     Active Substance: METHYLPHENIDATE HYDROCHLORIDE
     Indication: NARCOLEPSY
     Dosage: ?          QUANTITY:67 CAPSULE(S);?
     Route: 048
     Dates: start: 20200307, end: 20200418
  7. D SUPPLEMENT [Concomitant]
  8. METHYLPHENIDATE HCL ER 18 MG [Suspect]
     Active Substance: METHYLPHENIDATE HYDROCHLORIDE
     Indication: NARCOLEPSY
     Dosage: ?          QUANTITY:186 CAPSULE(S);?
     Route: 048
     Dates: start: 20200307, end: 20200418
  9. METHYLPHENIDATE DICLIFENAC SODIUM TOPICAL GEL [Concomitant]
  10. ALBUTERAL SULFATE HFA [Concomitant]
  11. LUTEIN + ZEAXANTHIN SOFTGEL [Concomitant]

REACTIONS (5)
  - Dry mouth [None]
  - Feeling jittery [None]
  - Product quality issue [None]
  - Feeling abnormal [None]
  - Product substitution issue [None]

NARRATIVE: CASE EVENT DATE: 20200307
